FAERS Safety Report 24542469 (Version 1)
Quarter: 2024Q4

REPORT INFORMATION
  Report Type: Spontaneous
  Country: US (occurrence: US)
  Receive Date: 20241024
  Receipt Date: 20241024
  Transmission Date: 20250115
  Serious: Yes (Death)
  Sender: STRIDES
  Company Number: US-STRIDES ARCOLAB LIMITED-2024SP013561

PATIENT

DRUGS (4)
  1. PREDNISOLONE [Suspect]
     Active Substance: PREDNISOLONE
     Indication: Uveitis
     Dosage: 20 MILLIGRAM, BID
     Route: 065
  2. RAPAMYCIN [Suspect]
     Active Substance: SIROLIMUS
     Indication: Uveitis
     Dosage: UNK
     Route: 065
  3. RITUXIMAB [Suspect]
     Active Substance: RITUXIMAB
     Indication: Autoimmune lymphoproliferative syndrome
     Dosage: UNK
     Route: 065
  4. IMMUNE GLOBULIN NOS [Suspect]
     Active Substance: IMMUNE GLOBULIN NOS
     Indication: Autoimmune lymphoproliferative syndrome
     Dosage: UNK
     Route: 065

REACTIONS (2)
  - Infection [Fatal]
  - Hyperglycaemia [Unknown]
